FAERS Safety Report 20546826 (Version 1)
Quarter: 2022Q1

REPORT INFORMATION
  Report Type: Spontaneous
  Country: IN (occurrence: IN)
  Receive Date: 20220303
  Receipt Date: 20220303
  Transmission Date: 20220423
  Serious: Yes (Hospitalization, Other)
  Sender: FDA-Public Use
  Company Number: IN-PFIZER INC-2020346582

PATIENT
  Age: 46 Year
  Sex: Female

DRUGS (12)
  1. PALBOCICLIB [Suspect]
     Active Substance: PALBOCICLIB
     Indication: Breast cancer metastatic
     Dosage: 125 MG, 1X/DAY
     Route: 048
     Dates: start: 20200701, end: 202009
  2. PALBOCICLIB [Suspect]
     Active Substance: PALBOCICLIB
     Dosage: 100 MG
     Route: 048
     Dates: start: 202009
  3. PALBOCICLIB [Suspect]
     Active Substance: PALBOCICLIB
     Dosage: 75 MG, OD (X 21 DAYS OF 28 DAYS X 6 MONTHS)
     Route: 048
     Dates: start: 202101
  4. PALBOCICLIB [Suspect]
     Active Substance: PALBOCICLIB
     Dosage: UNK
     Dates: end: 202103
  5. LETROZOLE [Concomitant]
     Active Substance: LETROZOLE
     Dosage: UNK
     Dates: start: 202007
  6. FULVESTRANT [Concomitant]
     Active Substance: FULVESTRANT
     Dosage: UNK
     Dates: start: 202103
  7. ZOLEDRONIC ACID [Concomitant]
     Active Substance: ZOLEDRONIC ACID
     Dosage: UNK
     Dates: start: 202007
  8. ZOLASTA [Concomitant]
     Dosage: UNK
     Dates: start: 202103
  9. ZOLASTA [Concomitant]
     Dosage: UNK
     Dates: start: 20211117
  10. XELODA [Concomitant]
     Active Substance: CAPECITABINE
     Dosage: 500 MG, CYCLIC (500 MG 2 IN MORNING AND 1 IN EVENING FOR 14 DAYS, THEN 7 DAYS OFF Q 3 WEEKLY)
     Dates: start: 202108
  11. EXEMESTANE [Concomitant]
     Active Substance: EXEMESTANE
     Dosage: Q3 MONTHLY
     Dates: start: 202111
  12. CYCLOPHOSPHAMIDE [Concomitant]
     Active Substance: CYCLOPHOSPHAMIDE
     Dosage: Q3 MONTHLY
     Dates: start: 20211117

REACTIONS (10)
  - Thrombocytopenia [Unknown]
  - Ascites [Unknown]
  - Pyrexia [Unknown]
  - Diarrhoea [Unknown]
  - Vomiting [Unknown]
  - Liver disorder [Unknown]
  - Asthenia [Unknown]
  - Neoplasm progression [Unknown]
  - Renal cyst [Unknown]
  - Hiatus hernia [Unknown]

NARRATIVE: CASE EVENT DATE: 20200901
